FAERS Safety Report 23921335 (Version 1)
Quarter: 2024Q2

REPORT INFORMATION
  Report Type: Spontaneous
  Country: GB (occurrence: GB)
  Receive Date: 20240530
  Receipt Date: 20240530
  Transmission Date: 20240716
  Serious: Yes (Other)
  Sender: FDA-Public Use
  Company Number: GB-TASMAN PHARMA, INC.-2024TSM00192

PATIENT
  Sex: Male

DRUGS (2)
  1. CLOZAPINE [Suspect]
     Active Substance: CLOZAPINE
     Indication: Schizophrenia
     Dosage: INITIAL; UNKNOWN
  2. CLOZAPINE [Suspect]
     Active Substance: CLOZAPINE
     Dosage: RECHALLENGE; UNKNOWN

REACTIONS (1)
  - Pericardial effusion [Recovered/Resolved]
